FAERS Safety Report 15658510 (Version 1)
Quarter: 2018Q4

REPORT INFORMATION
  Report Type: Spontaneous
  Country: US (occurrence: US)
  Receive Date: 20181126
  Receipt Date: 20181126
  Transmission Date: 20190205
  Serious: Yes (Disabling, Other)
  Sender: FDA-Public Use
  Company Number: US-SUNOVION-2018SUN004587

PATIENT
  Age: 71 Year
  Sex: Female

DRUGS (4)
  1. LATUDA [Suspect]
     Active Substance: LURASIDONE HYDROCHLORIDE
     Indication: BIPOLAR DISORDER
     Route: 048
  2. LATUDA [Suspect]
     Active Substance: LURASIDONE HYDROCHLORIDE
     Indication: ANXIETY
  3. DOXEPIN [Concomitant]
     Active Substance: DOXEPIN
     Dosage: UNK
  4. XANAX [Concomitant]
     Active Substance: ALPRAZOLAM
     Dosage: UNK

REACTIONS (9)
  - Psychomotor retardation [Unknown]
  - Anxiety [Unknown]
  - Flat affect [Unknown]
  - Hip arthroplasty [Unknown]
  - Cognitive disorder [Unknown]
  - Middle insomnia [Unknown]
  - Bipolar disorder [Not Recovered/Not Resolved]
  - Drug ineffective for unapproved indication [Unknown]
  - Off label use [Unknown]
